FAERS Safety Report 6208685-4 (Version None)
Quarter: 2009Q2

REPORT INFORMATION
  Report Type: 
  Country: None (occurrence: None)
  Receive Date: 20090522
  Receipt Date: 20090312
  Transmission Date: 20091009
  Serious: No
  Sender: FDA-Public Use
  Company Number: 8043932

PATIENT
  Age: 42 Year
  Sex: Male
  Weight: 93.6 kg

DRUGS (4)
  1. CIMZIA [Suspect]
     Indication: CROHN'S DISEASE
     Dosage: 400 MG SC
     Route: 058
     Dates: start: 20090220
  2. CLARITIN-D [Concomitant]
  3. PRILOSECQ [Concomitant]
  4. COLAZAL [Concomitant]

REACTIONS (4)
  - ARTHRALGIA [None]
  - CHEST PAIN [None]
  - CHILLS [None]
  - PYREXIA [None]
